FAERS Safety Report 22204569 (Version 1)
Quarter: 2023Q2

REPORT INFORMATION
  Report Type: Spontaneous
  Country: JP (occurrence: JP)
  Receive Date: 20230413
  Receipt Date: 20230413
  Transmission Date: 20230722
  Serious: Yes (Hospitalization)
  Sender: FDA-Public Use
  Company Number: JP-BAYER-2022A053432

PATIENT
  Age: 4 Decade
  Sex: Male

DRUGS (2)
  1. XARELTO [Suspect]
     Active Substance: RIVAROXABAN
     Indication: Deep vein thrombosis
     Dosage: 1 WEEK
     Route: 048
     Dates: start: 202111, end: 20220331
  2. XARELTO [Suspect]
     Active Substance: RIVAROXABAN
     Indication: Embolism venous
     Dosage: UNK
     Route: 048
     Dates: start: 202204

REACTIONS (1)
  - Deep vein thrombosis [Recovered/Resolved]

NARRATIVE: CASE EVENT DATE: 20220411
